FAERS Safety Report 6936510-2 (Version None)
Quarter: 2010Q3

REPORT INFORMATION
  Report Type: 
  Country: None (occurrence: None)
  Receive Date: 20100823
  Receipt Date: 20100812
  Transmission Date: 20110219
  Serious: Yes (Other)
  Sender: FDA-Public Use
  Company Number: US-PFIZER INC-2010051076

PATIENT
  Sex: Female

DRUGS (22)
  1. CHANTIX [Suspect]
     Indication: SMOKING CESSATION THERAPY
     Dosage: STARTER PACK AND CONTINUING PACK
     Dates: start: 20080201, end: 20080801
  2. PREDNISONE [Concomitant]
     Indication: RHEUMATOID ARTHRITIS
     Dosage: UNK
     Dates: start: 19970101
  3. PREDNISONE [Concomitant]
     Indication: ASTHMA
  4. LIPITOR [Concomitant]
     Indication: BLOOD CHOLESTEROL INCREASED
     Dosage: UNK
     Dates: start: 20041102, end: 20100601
  5. METHOTREXATE [Concomitant]
     Indication: RHEUMATOID ARTHRITIS
     Dosage: UNK
     Dates: start: 19970101
  6. CYMBALTA [Concomitant]
     Indication: DEPRESSION
     Dosage: UNK
     Dates: start: 20050101
  7. MELOXICAM [Concomitant]
     Indication: RHEUMATOID ARTHRITIS
     Dosage: UNK
     Dates: start: 20000101
  8. VALSARTAN [Concomitant]
     Indication: HYPERTENSION
     Dosage: UNK
     Dates: start: 19980101, end: 20080815
  9. METOCLOPRAMIDE [Concomitant]
     Indication: HERNIA
     Dosage: UNK
     Dates: start: 19980101
  10. METOCLOPRAMIDE [Concomitant]
     Indication: GASTROOESOPHAGEAL REFLUX DISEASE
  11. PREVACID [Concomitant]
     Indication: GASTROOESOPHAGEAL REFLUX DISEASE
     Dosage: UNK
     Dates: start: 20020101
  12. LORTAB [Concomitant]
     Indication: ANALGESIC THERAPY
     Dosage: UNK
     Dates: start: 20030401
  13. IPRATROPIUM [Concomitant]
     Indication: ASTHMA
     Dosage: UNK
     Dates: start: 20080227
  14. DIFLUCAN [Concomitant]
     Indication: FUNGAL INFECTION
     Dosage: UNK
     Dates: start: 20031113, end: 20080923
  15. CEPHALEXIN [Concomitant]
     Indication: HYPERSENSITIVITY
     Dosage: UNK
     Dates: start: 20050819, end: 20090930
  16. CEPHALEXIN [Concomitant]
     Indication: OROPHARYNGEAL PAIN
  17. LEVAQUIN [Concomitant]
     Indication: HYPERSENSITIVITY
     Dosage: UNK
     Dates: start: 20060803, end: 20090528
  18. LEVAQUIN [Concomitant]
     Indication: OROPHARYNGEAL PAIN
  19. LYRICA [Concomitant]
     Indication: ANALGESIC THERAPY
     Dosage: UNK
     Dates: start: 20071003, end: 20080418
  20. METRONIDAZOLE [Concomitant]
     Indication: ROSACEA
     Dosage: UNK
     Dates: start: 20071112, end: 20080829
  21. IPRATROPIUM BROMIDE AND ALBUTEROL SULFATE [Concomitant]
     Indication: ASTHMA
     Dosage: UNK
     Dates: start: 20080227, end: 20080331
  22. ALENDRONATE SODIUM [Concomitant]
     Indication: OSTEOPOROSIS PROPHYLAXIS
     Dosage: UNK
     Dates: start: 20080227, end: 20080408

REACTIONS (6)
  - ANXIETY [None]
  - DEPRESSION [None]
  - EMOTIONAL DISORDER [None]
  - PANIC ATTACK [None]
  - SLEEP DISORDER [None]
  - SUICIDAL IDEATION [None]
